FAERS Safety Report 5412954-5 (Version None)
Quarter: 2007Q3

REPORT INFORMATION
  Report Type: 
  Country: None (occurrence: None)
  Receive Date: 20070809
  Receipt Date: 20070726
  Transmission Date: 20080115
  Serious: Yes (Hospitalization, Other)
  Sender: FDA-Public Use
  Company Number: PAR_01657_2007

PATIENT
  Age: 36 Year
  Sex: Female

DRUGS (3)
  1. RANITIDINE [Suspect]
     Indication: ABDOMINAL PAIN UPPER
     Dosage: 150 MG BID
  2. RANITIDINE [Suspect]
     Indication: DYSPEPSIA
     Dosage: 150 MG BID
  3. ALGINIC ACID [Concomitant]

REACTIONS (4)
  - HAEMANGIOMA OF LIVER [None]
  - HEPATOTOXICITY [None]
  - IDIOSYNCRATIC DRUG REACTION [None]
  - SPLENOMEGALY [None]
